FAERS Safety Report 11541049 (Version 2)
Quarter: 2015Q4

REPORT INFORMATION
  Report Type: Spontaneous
  Country: US (occurrence: US)
  Receive Date: 20150923
  Receipt Date: 20151016
  Transmission Date: 20160304
  Serious: Yes (Other)
  Sender: FDA-Public Use
  Company Number: US-ASTRAZENECA-2013SE79984

PATIENT
  Age: 707 Month
  Sex: Female
  Weight: 150.6 kg

DRUGS (29)
  1. BYETTA [Suspect]
     Active Substance: EXENATIDE
     Indication: TYPE 2 DIABETES MELLITUS
     Dosage: 05 MCG PEN TWO TIMES DAILY
     Route: 065
     Dates: start: 20060809
  2. BYETTA [Suspect]
     Active Substance: EXENATIDE
     Indication: TYPE 2 DIABETES MELLITUS
     Dosage: 10 MCG PEN
     Route: 058
     Dates: start: 20090420, end: 20130627
  3. AMBIEN [Concomitant]
     Active Substance: ZOLPIDEM TARTRATE
     Route: 048
  4. TOPROL XL [Concomitant]
     Active Substance: METOPROLOL SUCCINATE
     Route: 065
  5. KEFLEX [Concomitant]
     Active Substance: CEPHALEXIN
     Route: 048
     Dates: start: 20140730, end: 20150105
  6. SANCTURA [Concomitant]
     Active Substance: TROSPIUM CHLORIDE
     Route: 065
  7. VIBRA [Concomitant]
     Route: 065
  8. NEURONTIN [Concomitant]
     Active Substance: GABAPENTIN
     Route: 048
  9. SURFAK [Concomitant]
     Route: 065
  10. LOZOL [Concomitant]
     Active Substance: INDAPAMIDE
     Route: 065
  11. GLIPIZIDE. [Concomitant]
     Active Substance: GLIPIZIDE
     Route: 048
     Dates: start: 20120424
  12. NEXIUM [Concomitant]
     Active Substance: ESOMEPRAZOLE MAGNESIUM
     Route: 048
     Dates: start: 20051220
  13. MYCOSTATIN [Concomitant]
     Active Substance: NYSTATIN
     Route: 065
  14. LYRICA [Concomitant]
     Active Substance: PREGABALIN
     Route: 065
  15. LISINOPRIL. [Concomitant]
     Active Substance: LISINOPRIL
     Route: 048
  16. HYDRODIURIL [Concomitant]
     Active Substance: HYDROCHLOROTHIAZIDE
     Route: 048
     Dates: start: 20141130, end: 20150105
  17. VIBRAMYCIN [Concomitant]
     Active Substance: DOXYCYCLINE
     Route: 065
  18. METFORMIN [Concomitant]
     Active Substance: METFORMIN HYDROCHLORIDE
     Route: 065
  19. VICODIN [Concomitant]
     Active Substance: ACETAMINOPHEN\HYDROCODONE BITARTRATE
     Route: 065
  20. CYMBALTA [Concomitant]
     Active Substance: DULOXETINE HYDROCHLORIDE
     Route: 065
  21. ZOLOFT [Concomitant]
     Active Substance: SERTRALINE HYDROCHLORIDE
     Route: 048
     Dates: start: 20060402
  22. AMARYL [Concomitant]
     Active Substance: GLIMEPIRIDE
     Route: 065
  23. DIFLUCAN [Concomitant]
     Active Substance: FLUCONAZOLE
     Route: 048
  24. LEVOTHYROXINE. [Concomitant]
     Active Substance: LEVOTHYROXINE
     Route: 065
  25. BYETTA [Suspect]
     Active Substance: EXENATIDE
     Indication: TYPE 2 DIABETES MELLITUS
     Dosage: UNK
     Route: 065
     Dates: start: 200702, end: 201304
  26. BYETTA [Suspect]
     Active Substance: EXENATIDE
     Indication: TYPE 2 DIABETES MELLITUS
     Dosage: 10 MCG PEN
     Route: 058
     Dates: start: 20070506
  27. ELMIRON [Concomitant]
     Active Substance: PENTOSAN POLYSULFATE SODIUM
     Route: 065
  28. ELAVIL [Concomitant]
     Active Substance: AMITRIPTYLINE HYDROCHLORIDE
     Route: 048
  29. LIPITOR [Concomitant]
     Active Substance: ATORVASTATIN CALCIUM
     Route: 048
     Dates: start: 20150113

REACTIONS (3)
  - Goitre [Unknown]
  - Autoimmune thyroiditis [Unknown]
  - Thyroid cancer [Unknown]

NARRATIVE: CASE EVENT DATE: 200810
